FAERS Safety Report 15645447 (Version 1)
Quarter: 2018Q4

REPORT INFORMATION
  Report Type: Spontaneous
  Country: IN (occurrence: IN)
  Receive Date: 20181121
  Receipt Date: 20181121
  Transmission Date: 20190205
  Serious: Yes (Other)
  Sender: FDA-Public Use
  Company Number: IN-ARBOR PHARMACEUTICALS, LLC-IN-2018ARB001151

PATIENT
  Age: 38 Year
  Sex: Female

DRUGS (4)
  1. ACETYLCYSTEINE. [Suspect]
     Active Substance: ACETYLCYSTEINE
     Indication: VASCULITIS
     Dosage: UNK
  2. DEXTROSE. [Suspect]
     Active Substance: DEXTROSE
     Indication: VASCULITIS
     Dosage: UNK
  3. INTRALIPID /01648802/ [Suspect]
     Active Substance: EGG PHOSPHOLIPIDS\GLYCERIN\SOYBEAN OIL
     Indication: VASCULITIS
     Dosage: UNK
  4. NEPHROSTERIL [Suspect]
     Active Substance: AMINO ACIDS
     Indication: VASCULITIS
     Dosage: UNK

REACTIONS (1)
  - Steatohepatitis [Unknown]
